FAERS Safety Report 10017475 (Version 3)
Quarter: 2014Q3

REPORT INFORMATION
  Report Type: Report from Study
  Country: CA (occurrence: CA)
  Receive Date: 20140318
  Receipt Date: 20140708
  Transmission Date: 20150326
  Serious: Yes (Hospitalization)
  Sender: FDA-Public Use
  Company Number: CA-ROCHE-1355763

PATIENT
  Age: 65 Year
  Sex: Male

DRUGS (27)
  1. METHYLPREDNISOLONE [Concomitant]
     Active Substance: METHYLPREDNISOLONE
     Indication: PREMEDICATION
     Route: 042
     Dates: start: 20120906
  2. NITRO-DUR [Concomitant]
     Active Substance: NITROGLYCERIN
  3. ASA [Concomitant]
     Active Substance: ASPIRIN
  4. HYDROMORPH CONTIN [Concomitant]
     Active Substance: HYDROMORPHONE
  5. ACETAMINOPHEN. [Concomitant]
     Active Substance: ACETAMINOPHEN
     Indication: PREMEDICATION
     Route: 048
     Dates: start: 20120906
  6. COUMADIN [Concomitant]
     Active Substance: WARFARIN SODIUM
  7. VITAMIN B12 [Concomitant]
     Active Substance: CYANOCOBALAMIN
  8. METFORMIN [Concomitant]
     Active Substance: METFORMIN HYDROCHLORIDE
  9. LANSOPRAZOLE. [Concomitant]
     Active Substance: LANSOPRAZOLE
  10. OXAZEPAM. [Concomitant]
     Active Substance: OXAZEPAM
  11. ACTEMRA [Suspect]
     Active Substance: TOCILIZUMAB
     Indication: PRODUCT USED FOR UNKNOWN INDICATION
     Route: 042
  12. VENTOLIN [Concomitant]
     Active Substance: ALBUTEROL SULFATE
  13. SPIRIVA [Concomitant]
     Active Substance: TIOTROPIUM BROMIDE MONOHYDRATE
  14. NOVOLIN [Concomitant]
     Active Substance: INSULIN HUMAN
  15. FUROSEMIDE. [Concomitant]
     Active Substance: FUROSEMIDE
  16. SPIRONOLACTONE. [Concomitant]
     Active Substance: SPIRONOLACTONE
  17. XATRAL [Concomitant]
     Active Substance: ALFUZOSIN
  18. SEREVENT [Concomitant]
     Active Substance: SALMETEROL XINAFOATE
  19. LYRICA [Concomitant]
     Active Substance: PREGABALIN
  20. LIPITOR [Concomitant]
     Active Substance: ATORVASTATIN CALCIUM
  21. TYLENOL [Concomitant]
     Active Substance: ACETAMINOPHEN
  22. RITUXAN [Suspect]
     Active Substance: RITUXIMAB
     Indication: RHEUMATOID ARTHRITIS
     Dosage: LAST DOSE: 26/MAR/2014 AMD 9/APR/2014
     Route: 042
     Dates: start: 20120906
  23. JANUVIA [Concomitant]
     Active Substance: SITAGLIPTIN PHOSPHATE
  24. COVERSYL [Concomitant]
     Active Substance: PERINDOPRIL
  25. DOCUSATE [Concomitant]
     Active Substance: DOCUSATE
  26. DIPHENHYDRAMINE HCL [Concomitant]
     Active Substance: DIPHENHYDRAMINE HYDROCHLORIDE
     Indication: PREMEDICATION
     Route: 048
  27. PREDNISONE. [Concomitant]
     Active Substance: PREDNISONE

REACTIONS (3)
  - Arthralgia [Not Recovered/Not Resolved]
  - Haemorrhage [Unknown]
  - Rheumatoid arthritis [Not Recovered/Not Resolved]

NARRATIVE: CASE EVENT DATE: 201407
